FAERS Safety Report 6335784-9 (Version None)
Quarter: 2009Q3

REPORT INFORMATION
  Report Type: 
  Country: None (occurrence: None)
  Receive Date: 20090828
  Receipt Date: 20090820
  Transmission Date: 20100115
  Serious: Yes (Hospitalization)
  Sender: FDA-Public Use
  Company Number: 2009SP016759

PATIENT
  Age: 71 Year
  Sex: Female

DRUGS (2)
  1. PEG-INTRON [Suspect]
     Indication: HEPATITIS C
     Dosage: 80 MCG; QW; SC
     Route: 058
     Dates: start: 20090409, end: 20090714
  2. RIBAVIRIN [Suspect]
     Indication: HEPATITIS C
     Dosage: PO
     Route: 048
     Dates: start: 20090409, end: 20090714

REACTIONS (29)
  - ABDOMINAL DISTENSION [None]
  - ALANINE AMINOTRANSFERASE INCREASED [None]
  - ANXIETY DISORDER [None]
  - ASTHENIA [None]
  - ATELECTASIS [None]
  - BLOOD CALCIUM DECREASED [None]
  - BLOOD IRON INCREASED [None]
  - BLOOD SODIUM DECREASED [None]
  - BLOOD TEST ABNORMAL [None]
  - BLOOD UREA DECREASED [None]
  - CEREBRAL ATROPHY [None]
  - DYSPNOEA [None]
  - FATIGUE [None]
  - HAEMOGLOBIN DECREASED [None]
  - HEADACHE [None]
  - HYPOTHYROIDISM [None]
  - INTESTINAL FUNCTIONAL DISORDER [None]
  - IRON BINDING CAPACITY TOTAL DECREASED [None]
  - MENTAL IMPAIRMENT [None]
  - MENTAL STATUS CHANGES [None]
  - METABOLIC ENCEPHALOPATHY [None]
  - MICTURITION DISORDER [None]
  - NUCLEAR MAGNETIC RESONANCE IMAGING BRAIN ABNORMAL [None]
  - PANCREATITIS CHRONIC [None]
  - PANCYTOPENIA [None]
  - SCAR [None]
  - TOXIC ENCEPHALOPATHY [None]
  - TREMOR [None]
  - TRICUSPID VALVE INCOMPETENCE [None]
